FAERS Safety Report 6240645-X (Version None)
Quarter: 2009Q2

REPORT INFORMATION
  Report Type: 
  Country: None (occurrence: None)
  Receive Date: 20090623
  Receipt Date: 20081124
  Transmission Date: 20091009
  Serious: No
  Sender: FDA-Public Use
  Company Number: US-ASTRAZENECA-2008UW26288

PATIENT
  Age: 2 Year
  Sex: Female
  Weight: 20.4 kg

DRUGS (2)
  1. PULMICORT RESPULES [Suspect]
     Indication: ASTHMA
     Route: 055
  2. XOPENEX [Concomitant]
     Dosage: AS NEEDED

REACTIONS (2)
  - AMBLYOPIA [None]
  - RASH [None]
